FAERS Safety Report 7979951-7 (Version None)
Quarter: 2011Q4

REPORT INFORMATION
  Report Type: 
  Country: None (occurrence: None)
  Receive Date: 20111208
  Receipt Date: 20111130
  Transmission Date: 20120403
  Serious: Yes (Disabling)
  Sender: FDA-Public Use
  Company Number: 2011SP049052

PATIENT
  Age: 31 Year
  Sex: Male

DRUGS (2)
  1. NASONEX [Suspect]
     Indication: CHRONIC SINUSITIS
     Dosage: QD
     Dates: start: 20080101
  2. DESLORATADINE [Concomitant]

REACTIONS (1)
  - BALANITIS CANDIDA [None]
